FAERS Safety Report 7374673-8 (Version None)
Quarter: 2011Q1

REPORT INFORMATION
  Report Type: 
  Country: None (occurrence: None)
  Receive Date: 20110325
  Receipt Date: 20100713
  Transmission Date: 20110831
  Serious: No
  Sender: FDA-Public Use
  Company Number: US-MYLANLABS-2010S1012689

PATIENT
  Age: 76 Year
  Sex: Female
  Weight: 129.73 kg

DRUGS (4)
  1. TEKTURNA [Concomitant]
     Indication: BLOOD PRESSURE INCREASED
     Route: 048
  2. VASOTEC [Concomitant]
     Indication: BLOOD PRESSURE INCREASED
     Route: 048
  3. SYNTHROID [Concomitant]
     Indication: THYROID DISORDER
     Route: 048
  4. FENTANYL-100 [Suspect]
     Indication: ARTHRALGIA
     Dosage: Q3D
     Route: 062
     Dates: start: 20100708

REACTIONS (2)
  - HYPERHIDROSIS [None]
  - BLOOD PRESSURE INCREASED [None]
